FAERS Safety Report 15781719 (Version 1)
Quarter: 2019Q1

REPORT INFORMATION
  Report Type: Spontaneous
  Country: GB (occurrence: GB)
  Receive Date: 20190102
  Receipt Date: 20190102
  Transmission Date: 20190417
  Serious: Yes (Death, Life-Threatening, Hospitalization, Other)
  Sender: FDA-Public Use
  Company Number: GB-009507513-0712USA09234

PATIENT
  Age: 66 Year
  Sex: Male

DRUGS (7)
  1. ZOCOR [Interacting]
     Active Substance: SIMVASTATIN
     Dosage: 60 MG, QD
     Route: 048
  2. CYCLOSPORINE. [Interacting]
     Active Substance: CYCLOSPORINE
     Dosage: 150 MG, UNK
  3. MYCOPHENOLATE SODIUM [Concomitant]
     Active Substance: MYCOPHENOLATE SODIUM
     Indication: GOUT
     Dosage: 500 MG, UNK
  4. INSULIN [Concomitant]
     Active Substance: INSULIN NOS
     Indication: DIABETES MELLITUS
  5. ZOCOR [Suspect]
     Active Substance: SIMVASTATIN
     Indication: HYPERLIPIDAEMIA
     Dosage: 30 MG, QD
     Route: 048
  6. COLCHICINE. [Interacting]
     Active Substance: COLCHICINE
     Indication: GOUT
     Dosage: 1.2 MG, UNK
  7. METICORTEN [Interacting]
     Active Substance: PREDNISONE
     Dosage: 7.5 MG, UNK

REACTIONS (4)
  - Rhabdomyolysis [Fatal]
  - Pneumonia [Fatal]
  - Drug interaction [Fatal]
  - Myopathy toxic [Fatal]
